FAERS Safety Report 13398123 (Version 2)
Quarter: 2017Q2

REPORT INFORMATION
  Report Type: Spontaneous
  Country: US (occurrence: US)
  Receive Date: 20170403
  Receipt Date: 20170411
  Transmission Date: 20170830
  Serious: No
  Sender: FDA-Public Use
  Company Number: US-TAIHO ONCOLOGY INC-EU-2017-00551

PATIENT
  Age: 62 Year
  Sex: Female
  Weight: 71.28 kg

DRUGS (9)
  1. VACCINIUM MACROCARPON [Concomitant]
     Active Substance: CRANBERRY
     Dosage: NI
  2. ATORVASTATIN [Concomitant]
     Active Substance: ATORVASTATIN
     Dosage: NI
  3. ADVIL [Concomitant]
     Active Substance: IBUPROFEN
     Dosage: NI
  4. THIAMINE. [Concomitant]
     Active Substance: THIAMINE
     Dosage: NI
  5. MAGNESIUM OXIDE. [Concomitant]
     Active Substance: MAGNESIUM OXIDE
     Dosage: NI
  6. ONDANSETRON [Concomitant]
     Active Substance: ONDANSETRON
     Dosage: NI
  7. LONSURF [Suspect]
     Active Substance: TIPIRACIL HYDROCHLORIDE\TRIFLURIDINE
     Indication: COLON CANCER
     Dosage: CYCLE 2
     Route: 048
     Dates: start: 20170322, end: 201703
  8. GEMFIBROZIL. [Concomitant]
     Active Substance: GEMFIBROZIL
     Dosage: NI
  9. FISH OIL [Concomitant]
     Active Substance: FISH OIL
     Dosage: NI

REACTIONS (1)
  - Cytopenia [Recovered/Resolved]

NARRATIVE: CASE EVENT DATE: 201703
